FAERS Safety Report 19570648 (Version 1)
Quarter: 2021Q3

REPORT INFORMATION
  Report Type: Report from Study
  Country: US (occurrence: US)
  Receive Date: 20210715
  Receipt Date: 20210715
  Transmission Date: 20211014
  Serious: Yes (Hospitalization)
  Sender: FDA-Public Use
  Company Number: US-GE HEALTHCARE LIFE SCIENCES-2021CSU003408

PATIENT
  Age: 70 Year
  Sex: Female

DRUGS (10)
  1. AMLODIPINE [Concomitant]
     Active Substance: AMLODIPINE BESYLATE
     Indication: HYPERTENSION
     Dosage: 5 MG, QD
     Dates: start: 2016
  2. GANTENERUMAB. [Suspect]
     Active Substance: GANTENERUMAB
     Indication: DEMENTIA ALZHEIMER^S TYPE
     Dosage: 510 MG, EVERY 2 WEEKS
     Route: 058
     Dates: start: 20191219, end: 20210617
  3. VIZAMYL [Suspect]
     Active Substance: FLUTEMETAMOL F-18
     Indication: DEMENTIA ALZHEIMER^S TYPE
  4. DONEPEZIL. [Concomitant]
     Active Substance: DONEPEZIL
     Indication: DEMENTIA ALZHEIMER^S TYPE
     Dosage: 10 MG, QD
     Dates: start: 20181019
  5. OMEPRAZOLE. [Concomitant]
     Active Substance: OMEPRAZOLE
     Indication: GASTROOESOPHAGEAL REFLUX DISEASE
     Dosage: 20 MG, QD
     Dates: start: 2006
  6. UBIDECARENONE. [Concomitant]
     Active Substance: UBIDECARENONE
     Indication: HYPERTENSION
     Dosage: 300 MG, QD
     Dates: start: 2009
  7. ESCITALOPRAM [Concomitant]
     Active Substance: ESCITALOPRAM OXALATE
     Indication: DEPRESSION
     Dosage: 20 MG, QD
     Dates: start: 20181011
  8. VITAMIN C [Concomitant]
     Active Substance: ASCORBIC ACID
     Dosage: ^25^ UNITS NOT PROVIDED, ONCE PER DAY
     Dates: start: 2016
  9. VIZAMYL [Suspect]
     Active Substance: FLUTEMETAMOL F-18
     Indication: DIAGNOSTIC PROCEDURE
     Dosage: 185 MBQ, SINGLE
     Route: 042
     Dates: start: 20190508, end: 20190508
  10. GLUCOSAMINE [Concomitant]
     Active Substance: GLUCOSAMINE
     Dosage: 1100 MG, QD
     Dates: start: 2016

REACTIONS (2)
  - Femur fracture [Recovering/Resolving]
  - Fall [Recovering/Resolving]

NARRATIVE: CASE EVENT DATE: 20210624
